FAERS Safety Report 18669861 (Version 1)
Quarter: 2020Q4

REPORT INFORMATION
  Report Type: Spontaneous
  Country: US (occurrence: US)
  Receive Date: 20201228
  Receipt Date: 20201228
  Transmission Date: 20210114
  Serious: No
  Sender: FDA-Public Use
  Company Number: US-APOTEX-2020AP024238

PATIENT
  Age: 62 Year
  Sex: Female

DRUGS (1)
  1. ANASTROZOLE. [Suspect]
     Active Substance: ANASTROZOLE
     Indication: ENDOCRINE DISORDER
     Dosage: 1 MILLIGRAM (DAILY)
     Route: 065

REACTIONS (1)
  - Drug eruption [Recovered/Resolved]
